FAERS Safety Report 4340570-5 (Version None)
Quarter: 2004Q2

REPORT INFORMATION
  Report Type: 
  Country: None (occurrence: None)
  Receive Date: 20040416
  Receipt Date: 20040416
  Transmission Date: 20050107
  Serious: Yes (Death, Hospitalization)
  Sender: FDA-Public Use
  Company Number: None

PATIENT
  Sex: Male

DRUGS (1)
  1. CELEBREX [Suspect]
     Indication: NON-SMALL CELL LUNG CANCER
     Dosage: 200 MG BID ORAL
     Route: 048
     Dates: start: 20010807, end: 20010814

REACTIONS (4)
  - COMPRESSION FRACTURE [None]
  - CONFUSIONAL STATE [None]
  - PAIN [None]
  - RENAL IMPAIRMENT [None]
